FAERS Safety Report 20681108 (Version 3)
Quarter: 2022Q4

REPORT INFORMATION
  Report Type: Report from Study
  Country: US (occurrence: US)
  Receive Date: 20220406
  Receipt Date: 20221114
  Transmission Date: 20230112
  Serious: Yes (Hospitalization)
  Sender: FDA-Public Use
  Company Number: US-KYOWAKIRIN-2022BKK004678

PATIENT

DRUGS (3)
  1. CRYSVITA [Suspect]
     Active Substance: BUROSUMAB-TWZA
     Indication: Hereditary hypophosphataemic rickets
     Dosage: COMBINED STRENGTHS OF 30 MG AND 10 MG TO ACHIEVE DOSE OF 70 MG EVERY 4 WEEKS
     Route: 058
     Dates: start: 201911
  2. CRYSVITA [Suspect]
     Active Substance: BUROSUMAB-TWZA
     Indication: Hereditary hypophosphataemic rickets
     Dosage: COMBINED STRENGTHS OF 30 MG AND 10 MG TO ACHIEVE DOSE OF 70 MG EVERY 4 WEEKS
     Route: 058
     Dates: start: 201911
  3. CRYSVITA [Suspect]
     Active Substance: BUROSUMAB-TWZA
     Indication: Hereditary hypophosphataemic rickets
     Dosage: UNK
     Route: 065

REACTIONS (4)
  - Hospitalisation [Unknown]
  - Joint stiffness [Unknown]
  - Tooth extraction [Unknown]
  - Knee operation [Unknown]
